FAERS Safety Report 4675374-7 (Version None)
Quarter: 2005Q2

REPORT INFORMATION
  Report Type: 
  Country: None (occurrence: None)
  Receive Date: 20050527
  Receipt Date: 20050210
  Transmission Date: 20051028
  Serious: No
  Sender: FDA-Public Use
  Company Number: US-BRISTOL-MYERS SQUIBB COMPANY-12857785

PATIENT
  Age: 39 Year
  Sex: Female
  Weight: 64 kg

DRUGS (6)
  1. ABILIFY [Suspect]
     Indication: BIPOLAR DISORDER
     Dates: start: 20050209
  2. LAMICTAL [Concomitant]
  3. TRILEPTAL [Concomitant]
  4. TOPAMAX [Concomitant]
  5. KLONOPIN [Concomitant]
  6. DETROL [Concomitant]

REACTIONS (1)
  - TREMOR [None]
